FAERS Safety Report 4549928-2 (Version None)
Quarter: 2004Q4

REPORT INFORMATION
  Report Type: 
  Country: None (occurrence: None)
  Receive Date: 20041230
  Receipt Date: 20040512
  Transmission Date: 20050328
  Serious: Yes (Hospitalization, Other)
  Sender: FDA-Public Use
  Company Number: 04-05-0694

PATIENT
  Age: 58 Year
  Sex: Female
  Weight: 68.0396 kg

DRUGS (14)
  1. CLOZAPINE [Suspect]
     Indication: BIPOLAR DISORDER
     Dosage: 200MG AM ORAL
     Route: 048
     Dates: start: 20040401, end: 20040512
  2. CLOZAPINE [Suspect]
     Indication: SCHIZOAFFECTIVE DISORDER
     Dosage: 200MG AM ORAL
     Route: 048
     Dates: start: 20040401, end: 20040512
  3. SEROQUEL [Concomitant]
  4. DEPAKOTE [Concomitant]
  5. DITROPAN [Concomitant]
  6. RISPERDAL [Concomitant]
  7. LEVOXYL [Concomitant]
  8. ALBUTEROL SULFATE [Concomitant]
  9. ATROVENT [Concomitant]
  10. SEREVENT [Concomitant]
  11. FLOVENT [Concomitant]
  12. ZESTRIL [Concomitant]
  13. PREMARIN [Concomitant]
  14. PROVERA [Concomitant]

REACTIONS (1)
  - AGRANULOCYTOSIS [None]
